FAERS Safety Report 9264762 (Version 1)
Quarter: 2013Q2

REPORT INFORMATION
  Report Type: Spontaneous
  Country: US (occurrence: None)
  Receive Date: 20130429
  Receipt Date: 20130429
  Transmission Date: 20140414
  Serious: Yes (Hospitalization)
  Sender: FDA-Public Use
  Company Number: None

PATIENT
  Age: 68 Year
  Sex: Male
  Weight: 58.9 kg

DRUGS (6)
  1. CYCLOPHOSPHAMIDE [Suspect]
     Dates: start: 20130327
  2. CYTARABINE [Suspect]
     Dates: end: 20130402
  3. METHOTREXATE [Suspect]
     Dates: end: 20130324
  4. ONCASPAR [Suspect]
     Dates: end: 20130410
  5. THIOGUANINE [Suspect]
     Dates: end: 20130409
  6. VINCRISTINE SULFATE [Suspect]
     Dates: end: 20130416

REACTIONS (3)
  - Septic embolus [None]
  - Fungal infection [None]
  - Leukaemia [None]
